FAERS Safety Report 5428709-1 (Version None)
Quarter: 2007Q3

REPORT INFORMATION
  Report Type: 
  Country: None (occurrence: None)
  Receive Date: 20070828
  Receipt Date: 20070827
  Transmission Date: 20080115
  Serious: Yes (Other)
  Sender: FDA-Public Use
  Company Number: US-SHR-US-2007-005499

PATIENT
  Age: 55 Year
  Sex: Female
  Weight: 86 kg

DRUGS (1)
  1. CLIMARA PRO [Suspect]
     Indication: MENOPAUSAL SYMPTOMS
     Dosage: 0.045/0.015 MG/D, CONT
     Route: 062
     Dates: start: 20070116, end: 20070320

REACTIONS (3)
  - ADENOMYOSIS [None]
  - ENDOMETRIAL HYPERPLASIA [None]
  - UTERINE LEIOMYOMA [None]
